FAERS Safety Report 23108096 (Version 3)
Quarter: 2025Q1

REPORT INFORMATION
  Report Type: Other
  Country: CA (occurrence: CA)
  Receive Date: 20231026
  Receipt Date: 20250310
  Transmission Date: 20250409
  Serious: No
  Sender: TOLMAR
  Company Number: CA-TOLMAR, INC.-23CA043929

PATIENT
  Sex: Male

DRUGS (4)
  1. ELIGARD [Suspect]
     Active Substance: LEUPROLIDE ACETATE
     Indication: Prostate cancer
     Dosage: 45 MILLIGRAM, Q 6 MONTH
     Route: 058
     Dates: start: 20230423
  2. ELIGARD [Suspect]
     Active Substance: LEUPROLIDE ACETATE
     Dosage: 45 MILLIGRAM, Q 6 MONTH
     Route: 058
     Dates: start: 20231008
  3. ELIGARD [Suspect]
     Active Substance: LEUPROLIDE ACETATE
     Dosage: 45 MILLIGRAM, Q 6 MONTH
     Route: 058
     Dates: start: 20240323
  4. ELIGARD [Suspect]
     Active Substance: LEUPROLIDE ACETATE
     Dosage: 45 MILLIGRAM, Q 6 MONTH
     Route: 058
     Dates: start: 20250222

REACTIONS (10)
  - Abdominal fat apron [Unknown]
  - Affect lability [Not Recovered/Not Resolved]
  - Osteoarthritis [Unknown]
  - Sleep terror [Unknown]
  - Mobility decreased [Unknown]
  - Pain [Unknown]
  - Hot flush [Unknown]
  - Depression [Not Recovered/Not Resolved]
  - Weight increased [Unknown]
  - Bone pain [Unknown]

NARRATIVE: CASE EVENT DATE: 20230101
